FAERS Safety Report 7062940-7 (Version None)
Quarter: 2010Q4

REPORT INFORMATION
  Report Type: 
  Country: None (occurrence: None)
  Receive Date: 20101026
  Receipt Date: 20100308
  Transmission Date: 20110411
  Serious: Yes (Other)
  Sender: FDA-Public Use
  Company Number: US-PFIZER INC-2010031406

PATIENT
  Sex: Female
  Weight: 68.038 kg

DRUGS (8)
  1. LIPITOR [Suspect]
     Indication: BLOOD CHOLESTEROL
     Dosage: UNK
     Dates: start: 20080301
  2. XALATAN [Concomitant]
  3. BETAGAN [Concomitant]
  4. ALTACE [Concomitant]
  5. SYNTHROID [Concomitant]
  6. CALTRATE [Concomitant]
  7. FISH OIL [Concomitant]
  8. NEXIUM [Concomitant]

REACTIONS (2)
  - MUSCLE SPASMS [None]
  - TONGUE DISORDER [None]
